FAERS Safety Report 8576074-3 (Version None)
Quarter: 2012Q3

REPORT INFORMATION
  Report Type: 
  Country: None (occurrence: None)
  Receive Date: 20120807
  Receipt Date: 20120730
  Transmission Date: 20120928
  Serious: Yes (Other)
  Sender: FDA-Public Use
  Company Number: JP-B.I. PHARMACEUTICALS,INC./RIDGEFIELD-2012-BP-17603YA

PATIENT
  Age: 78 Year
  Sex: Male

DRUGS (2)
  1. TAMSULOSIN HYDROCHLORIDE [Suspect]
     Indication: BENIGN PROSTATIC HYPERPLASIA
     Route: 048
  2. TAMSULOSIN HYDROCHLORIDE [Suspect]
     Dosage: 0.2 MG
     Route: 048
     Dates: start: 20110501

REACTIONS (1)
  - INTERSTITIAL LUNG DISEASE [None]
